FAERS Safety Report 26124867 (Version 1)
Quarter: 2025Q4

REPORT INFORMATION
  Report Type: Spontaneous
  Country: JP (occurrence: JP)
  Receive Date: 20251205
  Receipt Date: 20251205
  Transmission Date: 20260118
  Serious: Yes (Other)
  Sender: TEVA
  Company Number: JP-TEVA-VS-3400328

PATIENT

DRUGS (1)
  1. TRISENOX [Suspect]
     Active Substance: ARSENIC TRIOXIDE
     Indication: Acute promyelocytic leukaemia
     Dosage: INTRAVENOUS DRIP
     Route: 065
     Dates: start: 20251111, end: 20251127

REACTIONS (3)
  - Electrocardiogram QT prolonged [Unknown]
  - Off label use [Recovered/Resolved]
  - Ventricular extrasystoles [Unknown]

NARRATIVE: CASE EVENT DATE: 20251111
